FAERS Safety Report 18711191 (Version 1)
Quarter: 2021Q1

REPORT INFORMATION
  Report Type: Spontaneous
  Country: ES (occurrence: ES)
  Receive Date: 20210107
  Receipt Date: 20210107
  Transmission Date: 20210419
  Serious: Yes (Death)
  Sender: FDA-Public Use
  Company Number: ES-ROCHE-2745460

PATIENT
  Age: 57 Year
  Sex: Male

DRUGS (4)
  1. LOPINAVIR;RITONAVIR [Suspect]
     Active Substance: LOPINAVIR\RITONAVIR
     Indication: COVID-19
     Route: 048
     Dates: start: 20200313
  2. TOCILIZUMAB. [Suspect]
     Active Substance: TOCILIZUMAB
     Indication: COVID-19
     Route: 065
     Dates: start: 20200314
  3. FUROSEMIDA [Suspect]
     Active Substance: FUROSEMIDE
     Indication: PRODUCT USED FOR UNKNOWN INDICATION
     Route: 041
     Dates: start: 20200316
  4. HYDROXYCHLOROQUINE [Suspect]
     Active Substance: HYDROXYCHLOROQUINE
     Indication: COVID-19
     Dosage: 400 PER 12 HOURS ON FIRST DAY AND THEN 200 MG
     Route: 048
     Dates: start: 20200315

REACTIONS (2)
  - Hypernatraemia [Fatal]
  - Renal failure [Fatal]

NARRATIVE: CASE EVENT DATE: 20200319
